FAERS Safety Report 10366156 (Version 1)
Quarter: 2014Q3

REPORT INFORMATION
  Report Type: Spontaneous
  Country: JP (occurrence: None)
  Receive Date: 20140804
  Receipt Date: 20140804
  Transmission Date: 20150326
  Serious: Yes (Life-Threatening, Hospitalization)
  Sender: FDA-Public Use
  Company Number: JP2014K2966LIT

PATIENT
  Age: 46 Year
  Sex: Male

DRUGS (2)
  1. LANSOPRAZOLE WORLD (LANSOPRAZOLE) UNKNOWN [Suspect]
     Active Substance: LANSOPRAZOLE
     Indication: PRODUCT USED FOR UNKNOWN INDICATION
     Dosage: UNKNOWN DAILY DOSAGE UNKNOWN RT OF ADMINISTRATION  UNKNOWN THERAPY DATE
  2. ESCITALOPRAM [Suspect]
     Active Substance: ESCITALOPRAM OXALATE
     Indication: PRODUCT USED FOR UNKNOWN INDICATION
     Dosage: UNKNOWN DAILY DOSAGE (ROUTE OF ADMINISTRATION UNKNOWN UNKNOWN THERAOY DATES

REACTIONS (5)
  - Ventricular fibrillation [None]
  - Sedation [None]
  - Acute myocardial infarction [None]
  - Electrocardiogram QT prolonged [None]
  - Drug interaction [None]
